FAERS Safety Report 5396978-2 (Version None)
Quarter: 2007Q3

REPORT INFORMATION
  Report Type: 
  Country: None (occurrence: None)
  Receive Date: 20070725
  Receipt Date: 20061011
  Transmission Date: 20080115
  Serious: No
  Sender: FDA-Public Use
  Company Number: US-BAUSCH-2006BL005951

PATIENT
  Age: 65 Year
  Sex: Female

DRUGS (6)
  1. TROPICAMIDE [Suspect]
     Indication: OPHTHALMOLOGICAL EXAMINATION
     Route: 047
     Dates: start: 20060919, end: 20060919
  2. ACTONEL /USA/ [Concomitant]
     Indication: OSTEOPOROSIS
     Dates: start: 20060801
  3. VITAMIN CAP [Concomitant]
     Dates: start: 19960101
  4. OTHER HYPNOTICS AND SEDATIVES [Concomitant]
     Indication: INSOMNIA
  5. CALCIUM CHLORIDE [Concomitant]
     Dates: start: 19960101
  6. ASCORBIC ACID [Concomitant]
     Dates: start: 19960101

REACTIONS (3)
  - EYE IRRITATION [None]
  - KERATOCONJUNCTIVITIS SICCA [None]
  - VISUAL ACUITY REDUCED [None]
